FAERS Safety Report 6279760-3 (Version None)
Quarter: 2009Q3

REPORT INFORMATION
  Report Type: 
  Country: None (occurrence: None)
  Receive Date: 20090723
  Receipt Date: 20090526
  Transmission Date: 20100115
  Serious: Yes (Other)
  Sender: FDA-Public Use
  Company Number: US-PFIZER INC-2009201068

PATIENT
  Sex: Female
  Weight: 70.295 kg

DRUGS (2)
  1. DETROL LA [Suspect]
     Indication: HYPERTONIC BLADDER
     Dosage: 4 MG, 1X/DAY
     Route: 048
     Dates: start: 20090404, end: 20090416
  2. BCG VACCINE [Suspect]
     Dosage: UNK
     Dates: start: 20090327

REACTIONS (2)
  - HEADACHE [None]
  - POLYMYALGIA RHEUMATICA [None]
